FAERS Safety Report 7588667-0 (Version None)
Quarter: 2011Q3

REPORT INFORMATION
  Report Type: 
  Country: None (occurrence: None)
  Receive Date: 20110705
  Receipt Date: 20110705
  Transmission Date: 20111222
  Serious: Yes (Life-Threatening, Other)
  Sender: FDA-Public Use
  Company Number: None

PATIENT
  Sex: Female
  Weight: 64.41 kg

DRUGS (2)
  1. XANAX [Suspect]
     Indication: COLON CANCER
     Dosage: 1MG
     Dates: start: 20100107, end: 20100307
  2. METOPROLOL SUCCERATE [Concomitant]
     Indication: BLOOD PRESSURE
     Dosage: 1 TAB TWICE A DAY.
     Dates: start: 20070409, end: 20080412

REACTIONS (7)
  - FEELING ABNORMAL [None]
  - RASH [None]
  - NO THERAPEUTIC RESPONSE [None]
  - PRODUCT SUBSTITUTION ISSUE [None]
  - NEOPLASM MALIGNANT [None]
  - SCRATCH [None]
  - ECONOMIC PROBLEM [None]
